FAERS Safety Report 21124843 (Version 1)
Quarter: 2022Q3

REPORT INFORMATION
  Report Type: Spontaneous
  Country: US (occurrence: US)
  Receive Date: 20220725
  Receipt Date: 20220725
  Transmission Date: 20221027
  Serious: Yes (Other)
  Sender: FDA-Public Use
  Company Number: US-CIPLA LTD.-2022US04485

PATIENT
  Age: 47 Year
  Sex: Female

DRUGS (2)
  1. ANASTROZOLE [Suspect]
     Active Substance: ANASTROZOLE
     Indication: Endometrial stromal sarcoma
     Dosage: UNK
     Route: 065
     Dates: start: 2012, end: 2015
  2. ANASTROZOLE [Suspect]
     Active Substance: ANASTROZOLE
     Indication: Endometrial sarcoma recurrent

REACTIONS (1)
  - Drug resistance [Unknown]
